FAERS Safety Report 12442729 (Version 1)
Quarter: 2016Q2

REPORT INFORMATION
  Report Type: Spontaneous
  Country: ES (occurrence: ES)
  Receive Date: 20160607
  Receipt Date: 20160607
  Transmission Date: 20160815
  Serious: Yes (Other)
  Sender: FDA-Public Use
  Company Number: ES-JNJFOC-20160601514

PATIENT
  Age: 45 Year
  Sex: Male

DRUGS (4)
  1. ADOLONTA [Concomitant]
     Active Substance: TRAMADOL HYDROCHLORIDE
     Indication: SPONDYLITIS
     Route: 048
     Dates: start: 20150901
  2. OMEPRAZOL NORMON [Concomitant]
     Route: 048
  3. SIMPONI [Suspect]
     Active Substance: GOLIMUMAB
     Indication: ANKYLOSING SPONDYLITIS
     Dosage: PREFILLED SYRINGE
     Route: 058
     Dates: start: 20151029, end: 20151123
  4. INDOMETHACIN. [Concomitant]
     Active Substance: INDOMETHACIN
     Indication: SPONDYLITIS
     Route: 048
     Dates: start: 20150901

REACTIONS (1)
  - Deep vein thrombosis [Recovering/Resolving]

NARRATIVE: CASE EVENT DATE: 20151123
